FAERS Safety Report 6161576-X (Version None)
Quarter: 2009Q2

REPORT INFORMATION
  Report Type: 
  Country: None (occurrence: None)
  Receive Date: 20090421
  Receipt Date: 20090413
  Transmission Date: 20091009
  Serious: Yes (Other)
  Sender: FDA-Public Use
  Company Number: US-JNJFOC-20090403250

PATIENT
  Sex: Female

DRUGS (15)
  1. REMICADE [Suspect]
     Indication: CROHN'S DISEASE
     Route: 042
  2. DIOVAN [Concomitant]
  3. FUROSEMIDE [Concomitant]
  4. LIPITOR [Concomitant]
  5. PROTONIX [Concomitant]
  6. SYNTHROID [Concomitant]
  7. ZETIA [Concomitant]
  8. POTASSIUM CHLORIDE [Concomitant]
  9. PACERONE [Concomitant]
  10. COUMADIN [Concomitant]
  11. FEXOFENADINE [Concomitant]
  12. SPIRIVA [Concomitant]
  13. FLOVENT [Concomitant]
  14. PROVENTIL [Concomitant]
  15. PENTASA [Concomitant]

REACTIONS (1)
  - SKIN CANCER [None]
